FAERS Safety Report 7372222-1 (Version None)
Quarter: 2011Q1

REPORT INFORMATION
  Report Type: 
  Country: None (occurrence: None)
  Receive Date: 20110324
  Receipt Date: 20110315
  Transmission Date: 20110831
  Serious: Yes (Hospitalization, Other)
  Sender: FDA-Public Use
  Company Number: US-ASTRAZENECA-2011SE12954

PATIENT
  Age: 59 Year
  Sex: Female

DRUGS (1)
  1. SYMBICORT [Suspect]
     Route: 055

REACTIONS (6)
  - HOSPITALISATION [None]
  - EMPHYSEMA [None]
  - LUNG DISORDER [None]
  - HYPERCAPNIA [None]
  - ABDOMINAL ABSCESS [None]
  - MALIGNANT MELANOMA [None]
